FAERS Safety Report 25211608 (Version 2)
Quarter: 2025Q2

REPORT INFORMATION
  Report Type: Spontaneous
  Country: US (occurrence: US)
  Receive Date: 20250418
  Receipt Date: 20250604
  Transmission Date: 20250717
  Serious: No
  Sender: ABBVIE
  Company Number: US-ABBVIE-6227144

PATIENT
  Age: 59 Year
  Sex: Female
  Weight: 63 kg

DRUGS (7)
  1. VRAYLAR [Suspect]
     Active Substance: CARIPRAZINE
     Indication: Bipolar II disorder
     Dosage: FORM STRENGTH: 3 MILLIGRAM
     Route: 048
     Dates: start: 202502, end: 202503
  2. PANTOPRAZOLE [Concomitant]
     Active Substance: PANTOPRAZOLE
     Indication: Gastrointestinal disorder
  3. VALSARTAN [Concomitant]
     Active Substance: VALSARTAN
     Indication: Hypertension
  4. BUPROPION [Concomitant]
     Active Substance: BUPROPION
     Indication: Bipolar disorder
  5. METFORMIN [Concomitant]
     Active Substance: METFORMIN HYDROCHLORIDE
     Indication: Diabetes mellitus
  6. ATORVASTATIN [Concomitant]
     Active Substance: ATORVASTATIN
     Indication: Blood cholesterol
  7. LABETALOL [Concomitant]
     Active Substance: LABETALOL
     Indication: Hypertension

REACTIONS (2)
  - Dizziness [Recovered/Resolved]
  - Tremor [Recovered/Resolved]

NARRATIVE: CASE EVENT DATE: 20250201
